FAERS Safety Report 7803381-1 (Version None)
Quarter: 2011Q4

REPORT INFORMATION
  Report Type: 
  Country: None (occurrence: None)
  Receive Date: 20111007
  Receipt Date: 20110928
  Transmission Date: 20120403
  Serious: Yes (Other)
  Sender: FDA-Public Use
  Company Number: CA-ASTRAZENECA-2011SE58809

PATIENT
  Age: 70 Year
  Sex: Male

DRUGS (8)
  1. LITHIUM CARBONATE [Concomitant]
  2. ACCUPRIL [Concomitant]
  3. VITAMIN B-12 [Concomitant]
  4. LIPITOR [Concomitant]
  5. CRESTOR [Suspect]
     Route: 048
  6. HYDROCHLOROTHIAZIDE [Concomitant]
     Dates: start: 20110401, end: 20110901
  7. PLAVIX [Concomitant]
     Dates: start: 20110401
  8. METFORMIN HYDROCHLORIDE [Concomitant]

REACTIONS (4)
  - ASTHENIA [None]
  - MYALGIA [None]
  - CEREBROVASCULAR ACCIDENT [None]
  - GAIT DISTURBANCE [None]
